FAERS Safety Report 8943438 (Version 1)
Quarter: 2012Q4

REPORT INFORMATION
  Report Type: 
  Country: FR (occurrence: FR)
  Receive Date: 20121204
  Receipt Date: 20121204
  Transmission Date: 20130627
  Serious: Yes (Hospitalization, Other)
  Sender: FDA-Public Use
  Company Number: PHHY2012FR109678

PATIENT
  Age: 80 Year
  Sex: Female

DRUGS (4)
  1. RASILEZ [Suspect]
     Indication: HYPERTENSION
     Dates: start: 201103, end: 20121114
  2. TAREG [Suspect]
     Indication: HYPERTENSION
     Dates: start: 201210, end: 20121114
  3. BISOPROLOL [Suspect]
     Indication: HYPERTENSION
     Dates: start: 201103
  4. COOLMETEC [Suspect]
     Dates: start: 201103, end: 201210

REACTIONS (4)
  - Dehydration [Recovering/Resolving]
  - Diarrhoea [Recovering/Resolving]
  - Renal failure [Recovering/Resolving]
  - Hyperkalaemia [Recovering/Resolving]
